FAERS Safety Report 14949025 (Version 1)
Quarter: 2018Q2

REPORT INFORMATION
  Report Type: Spontaneous
  Country: BE (occurrence: BE)
  Receive Date: 20180529
  Receipt Date: 20180529
  Transmission Date: 20180711
  Serious: Yes (Other)
  Sender: FDA-Public Use
  Company Number: BE-MYLANLABS-2018M1033961

PATIENT
  Age: 29 Year
  Sex: Female

DRUGS (5)
  1. SALBUTAMOL [Suspect]
     Active Substance: ALBUTEROL
     Indication: FOETAL HEART RATE INCREASED
     Dosage: 10 MG, BID
     Route: 064
  2. SALBUTAMOL [Suspect]
     Active Substance: ALBUTEROL
     Dosage: 10 MG, TID
     Route: 064
  3. BETAMETHASONE. [Suspect]
     Active Substance: BETAMETHASONE
     Dosage: 12 MG, UNK
     Route: 064
  4. SALBUTAMOL [Suspect]
     Active Substance: ALBUTEROL
     Dosage: 10 MG 5 TIMES DAILY
     Route: 064
  5. BETAMETHASONE. [Suspect]
     Active Substance: BETAMETHASONE
     Indication: FOETAL HEART RATE INCREASED
     Dosage: 12 MG, UNK
     Route: 064

REACTIONS (7)
  - Condition aggravated [Recovering/Resolving]
  - Apnoea [Recovering/Resolving]
  - Premature baby [Recovering/Resolving]
  - Respiratory distress [Recovering/Resolving]
  - Foetal exposure during pregnancy [Recovering/Resolving]
  - Neonatal respiratory distress syndrome [Recovering/Resolving]
  - Tachypnoea [Recovering/Resolving]
